FAERS Safety Report 19132543 (Version 1)
Quarter: 2021Q2

REPORT INFORMATION
  Report Type: Spontaneous
  Country: US (occurrence: US)
  Receive Date: 20210414
  Receipt Date: 20210414
  Transmission Date: 20210717
  Serious: No
  Sender: FDA-Public Use
  Company Number: US-EMD SERONO-9228635

PATIENT
  Age: 30 Year
  Sex: Female

DRUGS (3)
  1. MAVENCLAD [Suspect]
     Active Substance: CLADRIBINE
     Indication: MULTIPLE SCLEROSIS
     Dosage: YEAR ONE CYCLE ONE THERAPY
     Route: 048
     Dates: start: 20200312
  2. MAVENCLAD [Suspect]
     Active Substance: CLADRIBINE
     Dosage: YEAR TWO MONTH ONE DAY 1 THERAPY
     Route: 048
     Dates: start: 20200331
  3. MAVENCLAD [Suspect]
     Active Substance: CLADRIBINE
     Dosage: YEAR ONE CYCLE TWO THERAPY
     Route: 048
     Dates: end: 2020

REACTIONS (6)
  - Vomiting [Recovered/Resolved]
  - Muscle spasms [Unknown]
  - Asthenia [Unknown]
  - Pain in extremity [Unknown]
  - Nausea [Unknown]
  - Migraine [Unknown]

NARRATIVE: CASE EVENT DATE: 2020
